FAERS Safety Report 9284014 (Version 1)
Quarter: 2013Q2

REPORT INFORMATION
  Report Type: Spontaneous
  Country: US (occurrence: None)
  Receive Date: 20130503
  Receipt Date: 20130503
  Transmission Date: 20140414
  Serious: Yes (Other)
  Sender: FDA-Public Use
  Company Number: NSR_01023_2013

PATIENT
  Age: 32 Year
  Sex: Female
  Weight: 99.79 kg

DRUGS (2)
  1. LAMOTRIGINE [Suspect]
     Indication: EPILEPSY
     Dosage: DF
     Route: 048
  2. LAMOTRIGINE [Concomitant]

REACTIONS (4)
  - Grand mal convulsion [None]
  - Drug ineffective [None]
  - Feeling abnormal [None]
  - Product quality issue [None]
